FAERS Safety Report 15336279 (Version 1)
Quarter: 2018Q3

REPORT INFORMATION
  Report Type: Spontaneous
  Country: US (occurrence: US)
  Receive Date: 20180830
  Receipt Date: 20180830
  Transmission Date: 20181010
  Serious: No
  Sender: FDA-Public Use
  Company Number: US-SHIRE-US201833551

PATIENT
  Age: 62 Year
  Sex: Male

DRUGS (1)
  1. GATTEX [Suspect]
     Active Substance: TEDUGLUTIDE\WATER
     Indication: SHORT-BOWEL SYNDROME
     Dosage: UNK UNK, 1X/DAY:QD
     Route: 065
     Dates: start: 20180810

REACTIONS (3)
  - Muscle spasms [Recovered/Resolved]
  - Influenza like illness [Recovered/Resolved]
  - Fluid retention [Unknown]

NARRATIVE: CASE EVENT DATE: 20180813
